FAERS Safety Report 14397222 (Version 1)
Quarter: 2018Q1

REPORT INFORMATION
  Report Type: Spontaneous
  Country: US (occurrence: US)
  Receive Date: 20180116
  Receipt Date: 20180116
  Transmission Date: 20180509
  Serious: No
  Sender: FDA-Public Use
  Company Number: US-ALLERGAN-1735206US

PATIENT
  Age: 33 Year
  Sex: Female

DRUGS (5)
  1. MEDROL [Suspect]
     Active Substance: METHYLPREDNISOLONE
     Indication: PRODUCT USED FOR UNKNOWN INDICATION
     Route: 065
  2. VITAMIN B COMPLEX [Concomitant]
     Active Substance: CYANOCOBALAMIN\DEXPANTHENOL\NIACINAMIDE\PYRIDOXINE HYDROCHLORIDE\RIBOFLAVIN 5^-PHOSPHATE SODIUM\THIAMINE HYDROCHLORIDE\VITAMIN B COMPLEX
     Indication: SUPPLEMENTATION THERAPY
     Dosage: UNK
     Route: 048
  3. IRON [Concomitant]
     Active Substance: IRON
     Indication: IRON DEFICIENCY
     Dosage: UNK
     Route: 048
  4. MULTIVITAMINS [Concomitant]
     Active Substance: VITAMINS
     Indication: SUPPLEMENTATION THERAPY
     Dosage: UNK
     Route: 048
  5. BOTOX COSMETIC [Suspect]
     Active Substance: ONABOTULINUMTOXINA
     Indication: GINGIVAL HYPERTROPHY
     Dosage: 7.5 UNITS, SINGLE
     Route: 030
     Dates: start: 20170620, end: 20170620

REACTIONS (11)
  - Nerve injury [Unknown]
  - Pain in jaw [Unknown]
  - Off label use [Unknown]
  - Facial pain [Unknown]
  - Hypoaesthesia [Unknown]
  - Speech disorder [Unknown]
  - Dysarthria [Unknown]
  - Injection site pain [Recovered/Resolved]
  - Dysphagia [Unknown]
  - Gastrointestinal haemorrhage [Unknown]
  - Paraesthesia [Unknown]

NARRATIVE: CASE EVENT DATE: 20170620
